FAERS Safety Report 6396307-1 (Version None)
Quarter: 2009Q4

REPORT INFORMATION
  Report Type: 
  Country: None (occurrence: None)
  Receive Date: 20091012
  Receipt Date: 20070724
  Transmission Date: 20100525
  Serious: Yes (Other)
  Sender: FDA-Public Use
  Company Number: US-ASTRAZENECA-2006UW26277

PATIENT
  Age: 15675 Day
  Sex: Female
  Weight: 93.4 kg

DRUGS (19)
  1. SEROQUEL [Suspect]
     Indication: DEPRESSION
     Route: 048
     Dates: start: 20020325
  2. SEROQUEL [Suspect]
     Indication: POST-TRAUMATIC STRESS DISORDER
     Route: 048
     Dates: start: 20020325
  3. ABILIFY [Concomitant]
     Dates: start: 20030101
  4. CLOZARIL [Concomitant]
  5. HALDOL [Concomitant]
     Indication: POST-TRAUMATIC STRESS DISORDER
     Dates: start: 19970101, end: 20060101
  6. HALDOL [Concomitant]
     Dates: start: 20000101
  7. RISPERDAL [Concomitant]
  8. ZYPREXA [Concomitant]
     Dates: start: 19970101, end: 20020101
  9. ZYPREXA [Concomitant]
     Dates: start: 20000101
  10. ACCUPRIL [Concomitant]
     Indication: DIABETIC NEPHROPATHY
     Dosage: 10 - 20 MG DAILY
     Route: 048
     Dates: start: 20000727
  11. ACCUPRIL [Concomitant]
     Indication: FATIGUE
     Dosage: 10 - 20 MG DAILY
     Route: 048
     Dates: start: 20000727
  12. ACCUPRIL [Concomitant]
     Indication: HYPERTENSION
     Dosage: 10 - 20 MG DAILY
     Route: 048
     Dates: start: 20000727
  13. PRAVACHOL [Concomitant]
     Indication: HYPERLIPIDAEMIA
     Route: 048
     Dates: start: 20030721
  14. DEPAKOTE [Concomitant]
     Indication: POST-TRAUMATIC STRESS DISORDER
     Dates: start: 20000101
  15. AMBIEN [Concomitant]
     Dates: start: 20000101
  16. LIPITOR [Concomitant]
     Indication: HYPERLIPIDAEMIA
     Dosage: 10 - 20 MG DAILY
     Dates: start: 20010308
  17. TEMAZEPAM [Concomitant]
     Dates: start: 20020628
  18. CRESTOR [Concomitant]
     Indication: HYPERLIPIDAEMIA
     Dates: start: 20040401
  19. TRAZODONE [Concomitant]
     Dates: start: 20040615

REACTIONS (2)
  - DIABETES MELLITUS [None]
  - DIABETIC NEPHROPATHY [None]
